FAERS Safety Report 17647135 (Version 4)
Quarter: 2020Q3

REPORT INFORMATION
  Report Type: Report from Study
  Country: US (occurrence: US)
  Receive Date: 20200408
  Receipt Date: 20200825
  Transmission Date: 20201102
  Serious: Yes (Hospitalization, Other)
  Sender: FDA-Public Use
  Company Number: NVSC2020US094111

PATIENT
  Age: 60 Year
  Sex: Male

DRUGS (2)
  1. ENTRESTO [Suspect]
     Active Substance: SACUBITRIL\VALSARTAN
     Dosage: 50 MG, BID
     Route: 048
     Dates: start: 201906
  2. ENTRESTO [Suspect]
     Active Substance: SACUBITRIL\VALSARTAN
     Indication: PRODUCT USED FOR UNKNOWN INDICATION
     Dosage: 1 DF (97/103 MG), BID
     Route: 048
     Dates: start: 201906

REACTIONS (4)
  - Asthma [Unknown]
  - Hypoacusis [Unknown]
  - Gastrointestinal haemorrhage [Unknown]
  - Syncope [Unknown]

NARRATIVE: CASE EVENT DATE: 202007
